FAERS Safety Report 16542775 (Version 2)
Quarter: 2019Q3

REPORT INFORMATION
  Report Type: Spontaneous
  Country: FR (occurrence: FR)
  Receive Date: 20190709
  Receipt Date: 20190711
  Transmission Date: 20191004
  Serious: Yes (Hospitalization)
  Sender: FDA-Public Use
  Company Number: FR-ABBVIE-19K-056-2843793-00

PATIENT
  Age: 8 Year
  Sex: Male

DRUGS (1)
  1. HUMIRA [Suspect]
     Active Substance: ADALIMUMAB
     Indication: CROHN^S DISEASE
     Route: 058
     Dates: start: 20190701

REACTIONS (3)
  - Pneumoperitoneum [Unknown]
  - Peritonitis [Unknown]
  - Jejunal perforation [Unknown]

NARRATIVE: CASE EVENT DATE: 201907
